FAERS Safety Report 7729024-3 (Version None)
Quarter: 2011Q3

REPORT INFORMATION
  Report Type: 
  Country: None (occurrence: None)
  Receive Date: 20110906
  Receipt Date: 20110829
  Transmission Date: 20111222
  Serious: Yes (Death, Other)
  Sender: FDA-Public Use
  Company Number: JP-BRISTOL-MYERS SQUIBB COMPANY-16013179

PATIENT
  Age: 74 Year
  Sex: Female

DRUGS (5)
  1. CYCLOPHOSPHAMIDE [Suspect]
     Indication: LYMPHOMA
     Dosage: TAKEN 1PER 21 DAYS
     Route: 048
  2. VINCRISTINE [Suspect]
     Indication: LYMPHOMA
  3. RITUXIMAB [Suspect]
     Indication: LYMPHOMA
  4. PREDNISONE [Suspect]
     Indication: LYMPHOMA
     Dosage: ALSO TAKEN 22.5MG/D;TAKEN EVERY 21 DAYS
     Route: 048
  5. DOXORUBICIN HCL [Suspect]
     Indication: LYMPHOMA

REACTIONS (3)
  - BONE MARROW FAILURE [None]
  - PNEUMONIA ASPIRATION [None]
  - DELIRIUM [None]
